FAERS Safety Report 9031440 (Version 2)
Quarter: 2013Q1

REPORT INFORMATION
  Report Type: Spontaneous
  Country: US (occurrence: US)
  Receive Date: 20130124
  Receipt Date: 20130201
  Transmission Date: 20140127
  Serious: No
  Sender: FDA-Public Use
  Company Number: US-009507513-1301USA011371

PATIENT
  Age: 25 Year
  Sex: Female
  Weight: 54.42 kg

DRUGS (4)
  1. MIRALAX [Suspect]
     Indication: POSTOPERATIVE CARE
     Dosage: 17 G, QD
     Route: 048
     Dates: start: 201206
  2. MIRALAX [Suspect]
     Indication: MEDICAL OBSERVATION
  3. SENOKOT (SENNA) [Concomitant]
     Indication: POSTOPERATIVE CARE
     Dosage: UNK, UNKNOWN
  4. COLACE [Concomitant]
     Indication: POSTOPERATIVE CARE
     Dosage: UNK, UNKNOWN

REACTIONS (5)
  - Abdominal pain upper [Recovered/Resolved]
  - Nausea [Recovered/Resolved]
  - Hyperhidrosis [Recovered/Resolved]
  - Dysgeusia [Recovered/Resolved]
  - Incorrect drug administration duration [Recovered/Resolved]
